FAERS Safety Report 24258635 (Version 1)
Quarter: 2024Q3

REPORT INFORMATION
  Report Type: Spontaneous
  Country: CN (occurrence: CN)
  Receive Date: 20240828
  Receipt Date: 20240828
  Transmission Date: 20241017
  Serious: Yes (Disabling, Other)
  Sender: PFIZER
  Company Number: CN-PFIZER INC-PV202400110592

PATIENT
  Age: 55 Year
  Sex: Male
  Weight: 60 kg

DRUGS (3)
  1. MEDROL [Suspect]
     Active Substance: METHYLPREDNISOLONE
     Indication: Interstitial lung disease
     Dosage: 40 MG, 1X/DAY
     Route: 048
     Dates: start: 20231226, end: 20231231
  2. MEDROL [Suspect]
     Active Substance: METHYLPREDNISOLONE
     Dosage: 40 MG, 1X/DAY
     Route: 048
     Dates: start: 20240224, end: 20240229
  3. METHYLPREDNISOLONE [Suspect]
     Active Substance: METHYLPREDNISOLONE
     Indication: Interstitial lung disease
     Dosage: 32 MG, 1X/DAY
     Route: 048
     Dates: start: 20240122, end: 20240220

REACTIONS (4)
  - Osteonecrosis [Not Recovered/Not Resolved]
  - Tachypnoea [Not Recovered/Not Resolved]
  - Muscular weakness [Not Recovered/Not Resolved]
  - Off label use [Unknown]

NARRATIVE: CASE EVENT DATE: 20231226
